FAERS Safety Report 5497970-X (Version None)
Quarter: 2007Q4

REPORT INFORMATION
  Report Type: 
  Country: None (occurrence: None)
  Receive Date: 20071025
  Receipt Date: 20071017
  Transmission Date: 20080405
  Serious: No
  Sender: FDA-Public Use
  Company Number: US-ASTRAZENECA-2007UW17015

PATIENT
  Age: 28169 Day
  Sex: Male
  Weight: 86.8 kg

DRUGS (5)
  1. CRESTOR [Suspect]
     Indication: BLOOD CHOLESTEROL INCREASED
     Route: 048
  2. CRESTOR [Suspect]
     Indication: CAROTID ARTERY STENOSIS
     Route: 048
  3. ASPIRIN [Concomitant]
  4. COZAAR [Concomitant]
  5. OCUVITE [Concomitant]
     Indication: MACULAR DEGENERATION

REACTIONS (4)
  - ABASIA [None]
  - ARTHRALGIA [None]
  - MYALGIA [None]
  - PAIN [None]
